FAERS Safety Report 8912135 (Version 1)
Quarter: 2012Q4

REPORT INFORMATION
  Report Type: 
  Country: US (occurrence: US)
  Receive Date: 20121115
  Receipt Date: 20121115
  Transmission Date: 20130627
  Serious: No
  Sender: FDA-Public Use
  Company Number: US-009507513-1210USA004731

PATIENT
  Sex: Female

DRUGS (4)
  1. CLARITIN [Suspect]
     Indication: SINUS HEADACHE
     Dosage: UNK, Unknown
     Route: 048
     Dates: start: 201203, end: 201204
  2. CLARITIN [Suspect]
     Dosage: 10 mg, Once
     Route: 048
     Dates: start: 2012
  3. ANTINEOPLASTIC (UNSPECIFIED) [Concomitant]
     Indication: LUNG NEOPLASM MALIGNANT
     Dosage: UNK, Unknown
     Route: 065
     Dates: start: 201202
  4. PROZAC [Concomitant]
     Indication: PRODUCT USED FOR UNKNOWN INDICATION
     Dosage: UNK, Unknown
     Route: 065

REACTIONS (3)
  - Vertigo [Unknown]
  - Malaise [Unknown]
  - Off label use [Unknown]
